FAERS Safety Report 18180882 (Version 1)
Quarter: 2020Q3

REPORT INFORMATION
  Report Type: Spontaneous
  Country: US (occurrence: US)
  Receive Date: 20200821
  Receipt Date: 20200821
  Transmission Date: 20201103
  Serious: Yes (Other)
  Sender: FDA-Public Use
  Company Number: None

PATIENT
  Age: 62 Year
  Sex: Female
  Weight: 54 kg

DRUGS (9)
  1. SYNTHROID [Concomitant]
     Active Substance: LEVOTHYROXINE SODIUM
  2. TIMOLOL MALEATE. [Concomitant]
     Active Substance: TIMOLOL MALEATE
  3. HRT CREAM [Concomitant]
  4. AZO [Suspect]
     Active Substance: PHENAZOPYRIDINE HYDROCHLORIDE
  5. TEST/DHEA/E2/PROG?VERSA [Concomitant]
  6. VITAMIN D [Concomitant]
     Active Substance: VITAMIN D NOS
  7. DIFLUCAN [Suspect]
     Active Substance: FLUCONAZOLE
  8. THYROTAIN [Concomitant]
  9. NITROFURANTOIN 100MG [Suspect]
     Active Substance: NITROFURANTOIN
     Indication: URINARY TRACT INFECTION
     Route: 048
     Dates: start: 20200812, end: 20200815

REACTIONS (5)
  - Headache [None]
  - Vomiting [None]
  - Malaise [None]
  - Nausea [None]
  - Blood pressure increased [None]

NARRATIVE: CASE EVENT DATE: 20200815
